FAERS Safety Report 4996390-1 (Version None)
Quarter: 2006Q2

REPORT INFORMATION
  Report Type: 
  Country: None (occurrence: None)
  Receive Date: 20060509
  Receipt Date: 20060428
  Transmission Date: 20061013
  Serious: Yes (Hospitalization)
  Sender: FDA-Public Use
  Company Number: FR-JNJFOC-20060500545

PATIENT
  Age: 39 Year
  Sex: Female
  Weight: 80 kg

DRUGS (7)
  1. RISPERDAL [Suspect]
     Route: 048
  2. DIANTALVIC [Suspect]
     Route: 048
  3. DIANTALVIC [Suspect]
     Indication: DRUG USE FOR UNKNOWN INDICATION
     Route: 048
  4. SERESTA [Suspect]
     Indication: DRUG USE FOR UNKNOWN INDICATION
  5. VENTOLIN [Suspect]
     Indication: DRUG USE FOR UNKNOWN INDICATION
     Route: 055
  6. METHADONE HCL [Suspect]
     Indication: DRUG USE FOR UNKNOWN INDICATION
  7. SEROPLEX [Suspect]
     Indication: DRUG USE FOR UNKNOWN INDICATION
     Route: 048

REACTIONS (1)
  - DRUG ABUSER [None]
